FAERS Safety Report 4492852-4 (Version None)
Quarter: 2004Q4

REPORT INFORMATION
  Report Type: 
  Country: None (occurrence: None)
  Receive Date: 20041102
  Receipt Date: 20041102
  Transmission Date: 20050328
  Serious: Yes (Hospitalization)
  Sender: FDA-Public Use
  Company Number: None

PATIENT
  Age: 59 Year
  Sex: Male
  Weight: 92.0802 kg

DRUGS (1)
  1. ELIDEL [Suspect]
     Indication: RASH
     Dosage: AS DIRECTED TOPICAL
     Route: 061
     Dates: start: 20040709, end: 20040713

REACTIONS (2)
  - CONDITION AGGRAVATED [None]
  - RASH [None]
